FAERS Safety Report 15023152 (Version 1)
Quarter: 2018Q2

REPORT INFORMATION
  Report Type: Spontaneous
  Country: US (occurrence: US)
  Receive Date: 20180618
  Receipt Date: 20180618
  Transmission Date: 20180711
  Serious: No
  Sender: FDA-Public Use
  Company Number: US-009507513-1806USA007400

PATIENT
  Age: 18 Year
  Sex: Female
  Weight: 49.89 kg

DRUGS (1)
  1. NEXPLANON [Suspect]
     Active Substance: ETONOGESTREL
     Indication: CONTRACEPTION
     Dosage: 1 IMPLANT, FOR EVERY 3 YEARS
     Route: 059
     Dates: start: 20170817

REACTIONS (2)
  - Abdominal pain [Unknown]
  - Menorrhagia [Unknown]

NARRATIVE: CASE EVENT DATE: 2017
